FAERS Safety Report 9996052 (Version 1)
Quarter: 2014Q1

REPORT INFORMATION
  Report Type: Spontaneous
  Country: BE (occurrence: BE)
  Receive Date: 20140311
  Receipt Date: 20140311
  Transmission Date: 20141002
  Serious: Yes (Other)
  Sender: FDA-Public Use
  Company Number: BE-WATSON-2014-03939

PATIENT
  Age: 58 Year
  Sex: Male
  Weight: 100 kg

DRUGS (6)
  1. TACROLIMUS (UNKNOWN) [Suspect]
     Indication: LIVER TRANSPLANT
     Dosage: 1 MG, DAILY
     Route: 048
  2. VORICONAZOLE [Interacting]
     Indication: BRONCHOPULMONARY ASPERGILLOSIS
     Dosage: UNK
     Route: 048
  3. VORICONAZOLE [Interacting]
     Dosage: 600 MG, BID, LOADING DOSE
     Route: 042
  4. VORICONAZOLE [Interacting]
     Dosage: 400 MG, DAILY, MAINTANACE DOSE
     Route: 042
  5. METHYLPREDNISOLONE [Concomitant]
     Indication: LIVER TRANSPLANT
     Dosage: 20 MG, BID
     Route: 065
  6. MYCOPHENOLATE MOFETIL [Concomitant]
     Indication: LIVER TRANSPLANT
     Dosage: 1 G, BID
     Route: 065

REACTIONS (2)
  - Drug level increased [Unknown]
  - Drug interaction [Unknown]
